FAERS Safety Report 6957626-0 (Version None)
Quarter: 2010Q3

REPORT INFORMATION
  Report Type: 
  Country: None (occurrence: None)
  Receive Date: 20100831
  Receipt Date: 20100818
  Transmission Date: 20110219
  Serious: Yes (Other)
  Sender: FDA-Public Use
  Company Number: US-ELI_LILLY_AND_COMPANY-US201008005817

PATIENT
  Age: 59 Year
  Sex: Female

DRUGS (10)
  1. CYMBALTA [Suspect]
     Indication: DEPRESSION
     Dosage: 90 MG, DAILY (1/D)
  2. RELAFEN [Concomitant]
  3. ACCOLATE [Concomitant]
  4. LISINOPRIL [Concomitant]
  5. RANITIDINE [Concomitant]
  6. ZETIA [Concomitant]
  7. SPIRIVA [Concomitant]
  8. SYMBICORT [Concomitant]
  9. PROAIR HFA [Concomitant]
  10. HYDROCHLOROTHIAZIDE [Concomitant]

REACTIONS (9)
  - BLOOD CHOLESTEROL INCREASED [None]
  - DRUG EFFECT DECREASED [None]
  - EATING DISORDER [None]
  - FLATULENCE [None]
  - HEADACHE [None]
  - HEPATIC STEATOSIS [None]
  - HEPATOMEGALY [None]
  - PAIN [None]
  - PAIN IN JAW [None]
